FAERS Safety Report 8558319-9 (Version None)
Quarter: 2012Q3

REPORT INFORMATION
  Report Type: 
  Country: None (occurrence: None)
  Receive Date: 20120727
  Receipt Date: 20120727
  Transmission Date: 20120928
  Serious: Yes (Hospitalization)
  Sender: FDA-Public Use
  Company Number: None

PATIENT
  Age: 73 Year
  Sex: Male
  Weight: 84 kg

DRUGS (4)
  1. COUMADIN [Suspect]
     Indication: DEEP VEIN THROMBOSIS
     Dosage: PO CHRONIC
     Route: 048
  2. ZETIA [Concomitant]
  3. M.V.I. [Concomitant]
  4. CALCIUM CARBONATE [Concomitant]

REACTIONS (4)
  - CEREBRAL HAEMORRHAGE [None]
  - MENTAL STATUS CHANGES [None]
  - FALL [None]
  - INTERNATIONAL NORMALISED RATIO INCREASED [None]
